FAERS Safety Report 9527409 (Version 1)
Quarter: 2013Q3

REPORT INFORMATION
  Report Type: Spontaneous
  Country: US (occurrence: US)
  Receive Date: 20130917
  Receipt Date: 20130917
  Transmission Date: 20140515
  Serious: No
  Sender: FDA-Public Use
  Company Number: US-BIOGENIDEC-2013BI086443

PATIENT
  Age: 49 Year
  Sex: Male

DRUGS (10)
  1. TYSABRI [Suspect]
     Indication: MULTIPLE SCLEROSIS
     Route: 042
     Dates: start: 20110603, end: 2012
  2. TYSABRI [Suspect]
     Indication: MULTIPLE SCLEROSIS
     Route: 042
     Dates: start: 2012, end: 2013
  3. TYSABRI [Suspect]
     Indication: MULTIPLE SCLEROSIS
     Route: 042
     Dates: start: 201306
  4. BACLOFEN PUMP [Concomitant]
     Indication: BACK PAIN
  5. BACLOFEN PUMP [Concomitant]
     Indication: NECK PAIN
  6. OXYCONTIN [Concomitant]
     Indication: BACK PAIN
     Route: 048
  7. OXYCONTIN [Concomitant]
     Indication: NECK PAIN
     Route: 048
  8. OXYCODONE [Concomitant]
     Indication: BACK PAIN
  9. OXYCODONE [Concomitant]
     Indication: NECK PAIN
  10. PAROXETINE HYDROCHLORIDE [Concomitant]
     Indication: DEPRESSION
     Dates: start: 201307

REACTIONS (3)
  - Migraine [Unknown]
  - Memory impairment [Not Recovered/Not Resolved]
  - Coronary artery occlusion [Unknown]
